FAERS Safety Report 8184848-6 (Version None)
Quarter: 2012Q1

REPORT INFORMATION
  Report Type: 
  Country: None (occurrence: None)
  Receive Date: 20120305
  Receipt Date: 20120301
  Transmission Date: 20120608
  Serious: Yes (Hospitalization)
  Sender: FDA-Public Use
  Company Number: RU-BAYER-2012-020683

PATIENT
  Age: 40 Year
  Sex: Male

DRUGS (1)
  1. BILTRICIDE [Suspect]
     Route: 048

REACTIONS (2)
  - URTICARIA [None]
  - ANGIOEDEMA [None]
